FAERS Safety Report 20450674 (Version 2)
Quarter: 2022Q1

REPORT INFORMATION
  Report Type: Spontaneous
  Country: JP (occurrence: JP)
  Receive Date: 20220209
  Receipt Date: 20220317
  Transmission Date: 20220424
  Serious: Yes (Other)
  Sender: FDA-Public Use
  Company Number: JP-JNJFOC-20211215509

PATIENT
  Age: 71 Year
  Sex: Female

DRUGS (11)
  1. RISPERDAL CONSTA [Suspect]
     Active Substance: RISPERIDONE
     Indication: Schizophrenia
     Dosage: DOSE UNKNOWN
     Route: 030
     Dates: start: 20100107
  2. RISPERDAL CONSTA [Suspect]
     Active Substance: RISPERIDONE
     Indication: Schizophrenia
     Dosage: RISPERIDONE:25MG
     Route: 030
     Dates: start: 20100107
  3. RISPERDAL CONSTA [Suspect]
     Active Substance: RISPERIDONE
     Indication: Schizophrenia
     Dosage: RISPERIDONE:25MG
     Route: 030
     Dates: end: 20211119
  4. RISPERDAL CONSTA [Suspect]
     Active Substance: RISPERIDONE
  5. CLONAZEPAM [Concomitant]
     Active Substance: CLONAZEPAM
     Indication: Product used for unknown indication
     Dosage: PERORAL MEDICINE
     Route: 048
     Dates: start: 20210127
  6. LEVOMEPROMAZINE [Concomitant]
     Active Substance: LEVOMEPROMAZINE
     Indication: Product used for unknown indication
     Dosage: PERORAL MEDICINE
     Route: 048
     Dates: start: 20210127
  7. NITRAZEPAM [Concomitant]
     Active Substance: NITRAZEPAM
     Indication: Product used for unknown indication
     Dosage: PERORAL MEDICINE
     Route: 048
     Dates: start: 20210127
  8. BIPERIDEN HYDROCHLORIDE [Concomitant]
     Active Substance: BIPERIDEN HYDROCHLORIDE
     Indication: Product used for unknown indication
     Dosage: PERORAL MEDICINE
     Route: 048
     Dates: start: 20210127
  9. SOLANAX [Concomitant]
     Active Substance: ALPRAZOLAM
     Indication: Product used for unknown indication
     Dosage: PERORAL MEDICINE
     Route: 048
  10. AMLODIPINE BESYLATE [Concomitant]
     Active Substance: AMLODIPINE BESYLATE
     Indication: Product used for unknown indication
     Dosage: PERORAL MEDICINE
     Route: 048
     Dates: start: 20211127
  11. MAGNESIUM OXIDE [Concomitant]
     Active Substance: MAGNESIUM OXIDE
     Indication: Product used for unknown indication
     Dosage: PERORAL MEDICINE
     Route: 048
     Dates: start: 20210127

REACTIONS (4)
  - Electrocardiogram Q wave abnormal [Unknown]
  - Blood pressure increased [Recovered/Resolved]
  - Supraventricular extrasystoles [Unknown]
  - Somnolence [Unknown]

NARRATIVE: CASE EVENT DATE: 20211123
